FAERS Safety Report 14968864 (Version 1)
Quarter: 2018Q2

REPORT INFORMATION
  Report Type: Report from Study
  Country: AU (occurrence: AU)
  Receive Date: 20180604
  Receipt Date: 20180604
  Transmission Date: 20180711
  Serious: Yes (Other)
  Sender: FDA-Public Use
  Company Number: AU-SUNOVION-2018DSP006340

PATIENT
  Sex: Male
  Weight: 104 kg

DRUGS (1)
  1. LATUDA [Suspect]
     Active Substance: LURASIDONE HYDROCHLORIDE
     Dosage: 40 MG, BID
     Route: 048
     Dates: start: 20171214

REACTIONS (4)
  - Psychotic symptom [Unknown]
  - Weight decreased [Unknown]
  - Blood glucose decreased [Unknown]
  - Off label use [Unknown]
